FAERS Safety Report 12684489 (Version 1)
Quarter: 2016Q3

REPORT INFORMATION
  Report Type: Spontaneous
  Country: US (occurrence: US)
  Receive Date: 20160825
  Receipt Date: 20160825
  Transmission Date: 20161109
  Serious: Yes (Other)
  Sender: FDA-Public Use
  Company Number: US-ASTRAZENECA-2016SE89418

PATIENT
  Age: 58 Year
  Sex: Male
  Weight: 99.8 kg

DRUGS (15)
  1. FISH OIL [Concomitant]
     Active Substance: FISH OIL
     Route: 065
  2. PURITANS PRIDE MEGA-POTENCY VITAMIN D3 1O,OOO IU RAPID RELEASE SOFT... [Concomitant]
     Indication: SUPPLEMENTATION THERAPY
     Dosage: ONE SOFTGEL, ONCE PER DAY
     Route: 048
     Dates: start: 2012, end: 20160630
  3. PURITANS PRIDE C-1000MG WITH BIOFLANOIDS RAPID RELEASE CAPSULES [Concomitant]
     Indication: SUPPLEMENTATION THERAPY
     Route: 048
     Dates: start: 2012, end: 20160630
  4. DAILY VITAMIN [Concomitant]
     Active Substance: VITAMINS
     Route: 065
  5. PROBIOTIC [Concomitant]
     Active Substance: PROBIOTICS NOS
     Route: 065
  6. LOVASTATIN. [Concomitant]
     Active Substance: LOVASTATIN
     Route: 065
  7. CINNAMON. [Concomitant]
     Active Substance: CINNAMON
     Dosage: UNKNOWN
     Route: 065
  8. ST JOHNS WORT [Concomitant]
     Active Substance: ST. JOHN^S WORT
     Route: 065
  9. LISINOPRIL. [Suspect]
     Active Substance: LISINOPRIL
     Indication: HYPERTENSION
     Route: 048
     Dates: start: 1997, end: 20160630
  10. LISINOPRIL. [Suspect]
     Active Substance: LISINOPRIL
     Indication: HYPERTENSION
     Dosage: 40.0MG UNKNOWN
     Route: 048
  11. HYDROCHLORATHIAZIDE [Concomitant]
     Active Substance: HYDROCHLOROTHIAZIDE
     Route: 065
  12. LEVOTHYROXINE. [Concomitant]
     Active Substance: LEVOTHYROXINE
     Route: 065
  13. PURITANS PRIDE YEAST FREE CHROMIUM POLYNICOTINATE [Concomitant]
     Indication: SUPPLEMENTATION THERAPY
     Dosage: 200, 1 DF, TWO TIMES A DAY
     Route: 048
     Dates: start: 201601, end: 20160630
  14. NEXIUM [Suspect]
     Active Substance: ESOMEPRAZOLE MAGNESIUM
     Indication: GASTRIC DISORDER
     Dosage: EVERY DAY
     Route: 048
  15. NEXIUM [Suspect]
     Active Substance: ESOMEPRAZOLE MAGNESIUM
     Indication: GASTRIC DISORDER
     Dosage: EVERY OTHER DAY
     Route: 048

REACTIONS (3)
  - Blood calcium increased [Unknown]
  - Chronic kidney disease [Unknown]
  - Off label use [Unknown]
